FAERS Safety Report 7842448 (Version 3)
Quarter: 2012Q4

REPORT INFORMATION
  Report Type: Report from Study
  Country: AU (occurrence: US)
  Receive Date: 20110304
  Receipt Date: 20120830
  Transmission Date: 20130627
  Serious: Yes (Other)
  Sender: FDA-Public Use
  Company Number: US-BRISTOL-MYERS SQUIBB COMPANY-15570542

PATIENT
  Age: 56 Year
  Sex: Male

DRUGS (6)
  1. SAXAGLIPTIN [Suspect]
     Indication: TYPE 2 DIABETES MELLITUS
     Route: 048
     Dates: start: 20101207
  2. METFORMIN HCL [Suspect]
     Indication: TYPE 2 DIABETES MELLITUS
     Dosage: 750mg Unk-21Aug09
3000mg 10Jun10-Ong
Also taken as conmed
     Route: 048
     Dates: start: 20100610
  3. GLICLAZIDE [Suspect]
     Indication: TYPE 2 DIABETES MELLITUS
     Dosage: Also taken as conmed
480mg from 10Jun10-Ong
     Route: 048
     Dates: start: 20100610
  4. GLIBENCLAMIDE [Concomitant]
     Dosage: 25mg till 29Jul06,24Sep09
30mg till 10Jun10
     Dates: end: 20100610
  5. GLIMEPIRIDE [Concomitant]
     Dates: end: 20090821
  6. PIOGLITAZONE HCL [Concomitant]
     Dates: end: 20090821

REACTIONS (1)
  - Herpes zoster [Recovered/Resolved]
